FAERS Safety Report 25049602 (Version 1)
Quarter: 2025Q1

REPORT INFORMATION
  Report Type: Spontaneous
  Country: CM (occurrence: CM)
  Receive Date: 20250307
  Receipt Date: 20250307
  Transmission Date: 20250409
  Serious: Yes (Hospitalization, Other)
  Sender: MICRO LABS
  Company Number: CM-862174955-ML2025-01097

PATIENT
  Age: 29 Year
  Sex: Male

DRUGS (2)
  1. DEXAMETHASONE [Suspect]
     Active Substance: DEXAMETHASONE
     Indication: Ulcer
  2. DICLOFENAC [Suspect]
     Active Substance: DICLOFENAC
     Indication: Product used for unknown indication

REACTIONS (5)
  - Duodenal ulcer [Recovered/Resolved]
  - Duodenal ulcer perforation [Recovered/Resolved]
  - Shock haemorrhagic [Recovered/Resolved]
  - Duodenal ulcer haemorrhage [Recovered/Resolved]
  - Intentional product misuse [Unknown]
